FAERS Safety Report 6668385-3 (Version None)
Quarter: 2010Q2

REPORT INFORMATION
  Report Type: 
  Country: None (occurrence: None)
  Receive Date: 20100406
  Receipt Date: 20100402
  Transmission Date: 20101027
  Serious: Yes (Life-Threatening, Hospitalization)
  Sender: FDA-Public Use
  Company Number: JP-ASTRAZENECA-2010SE08856

PATIENT
  Age: 68 Year
  Sex: Male
  Weight: 67 kg

DRUGS (3)
  1. IRESSA [Suspect]
     Indication: LUNG NEOPLASM MALIGNANT
     Route: 048
     Dates: start: 20060307, end: 20080801
  2. IRESSA [Suspect]
     Route: 048
     Dates: start: 20081107, end: 20090117
  3. IRESSA [Suspect]
     Route: 048
     Dates: start: 20090123, end: 20090701

REACTIONS (8)
  - ACTIVITIES OF DAILY LIVING IMPAIRED [None]
  - DIVERTICULAR PERFORATION [None]
  - DRUG INEFFECTIVE [None]
  - HEADACHE [None]
  - HYPOPHAGIA [None]
  - IMPLANT SITE ABSCESS [None]
  - INGUINAL HERNIA, OBSTRUCTIVE [None]
  - LARGE INTESTINE PERFORATION [None]
